FAERS Safety Report 9768395 (Version 2)
Quarter: 2014Q3

REPORT INFORMATION
  Report Type: Spontaneous
  Country: US (occurrence: US)
  Receive Date: 20131217
  Receipt Date: 20140821
  Transmission Date: 20150326
  Serious: Yes (Hospitalization)
  Sender: FDA-Public Use
  Company Number: US-009507513-1312USA007776

PATIENT
  Sex: Female
  Weight: 45.25 kg

DRUGS (1)
  1. NUVARING [Suspect]
     Active Substance: ETHINYL ESTRADIOL\ETONOGESTREL
     Indication: HORMONE REPLACEMENT THERAPY
     Dosage: UNK
     Route: 067
     Dates: end: 201303

REACTIONS (11)
  - Depression [Unknown]
  - Adverse drug reaction [Unknown]
  - Deep vein thrombosis [Unknown]
  - Off label use [Unknown]
  - Endometritis [Unknown]
  - Vaginal haemorrhage [Unknown]
  - Packed red blood cell transfusion [Unknown]
  - Vena cava filter insertion [Unknown]
  - Uterine dilation and curettage [Unknown]
  - Venous stent insertion [Unknown]
  - Rash macular [Unknown]

NARRATIVE: CASE EVENT DATE: 201103
